FAERS Safety Report 6169403-1 (Version None)
Quarter: 2009Q2

REPORT INFORMATION
  Report Type: 
  Country: None (occurrence: None)
  Receive Date: 20090424
  Receipt Date: 20090417
  Transmission Date: 20091009
  Serious: Yes (Hospitalization)
  Sender: FDA-Public Use
  Company Number: 2009SP003742

PATIENT
  Age: 79 Year
  Sex: Male
  Weight: 57 kg

DRUGS (5)
  1. CLARITIN [Suspect]
     Indication: DERMATITIS EXFOLIATIVE
     Dosage: 10 MG; QD; PO
     Route: 048
     Dates: start: 20081125, end: 20090213
  2. ORENGEDOKUTO (NO PREF. NAME) [Suspect]
     Indication: DERMATITIS EXFOLIATIVE
     Dosage: 2.5 GM; TID; PO
     Route: 048
     Dates: start: 20081028, end: 20090213
  3. NORVASC [Concomitant]
  4. OLMETEC [Concomitant]
  5. MUCOSTA [Concomitant]

REACTIONS (4)
  - ALANINE AMINOTRANSFERASE INCREASED [None]
  - ASPARTATE AMINOTRANSFERASE INCREASED [None]
  - BLOOD ALKALINE PHOSPHATASE INCREASED [None]
  - GAMMA-GLUTAMYLTRANSFERASE INCREASED [None]
